FAERS Safety Report 21450504 (Version 1)
Quarter: 2022Q4

REPORT INFORMATION
  Report Type: Report from Study
  Country: US (occurrence: US)
  Receive Date: 20221013
  Receipt Date: 20221013
  Transmission Date: 20230112
  Serious: No
  Sender: FDA-Public Use
  Company Number: US-AGIOS-2210US03149

PATIENT

DRUGS (1)
  1. MITAPIVAT [Suspect]
     Active Substance: MITAPIVAT
     Indication: Thalassaemia beta
     Dosage: 100 MILLIGRAM, BID
     Route: 048
     Dates: start: 20220917

REACTIONS (3)
  - Product dose omission issue [Unknown]
  - Intentional product misuse [Unknown]
  - Off label use [Unknown]
